FAERS Safety Report 7293274-3 (Version None)
Quarter: 2011Q1

REPORT INFORMATION
  Report Type: 
  Country: None (occurrence: None)
  Receive Date: 20110215
  Receipt Date: 20110201
  Transmission Date: 20110831
  Serious: Yes (Other)
  Sender: FDA-Public Use
  Company Number: JP-WATSON-2011-01815

PATIENT
  Age: 69 Year
  Sex: Female

DRUGS (3)
  1. PREDNISONE (WATSON LABORATORIES) [Suspect]
     Indication: TEMPORAL ARTERITIS
     Dosage: 45 MG, DAILY
     Route: 048
  2. PREDNISONE (WATSON LABORATORIES) [Suspect]
     Dosage: 5 MG, DAILY
     Route: 048
  3. HYDROCORTISONE ACETATE [Suspect]
     Indication: TEMPORAL ARTERITIS
     Dosage: 100 MG, SINGLE
     Route: 042

REACTIONS (4)
  - PALPITATIONS [None]
  - HYPERTENSION [None]
  - PHAEOCHROMOCYTOMA CRISIS [None]
  - TREMOR [None]
